FAERS Safety Report 7862047-2 (Version None)
Quarter: 2011Q4

REPORT INFORMATION
  Report Type: 
  Country: None (occurrence: None)
  Receive Date: 20111027
  Receipt Date: 20101122
  Transmission Date: 20120403
  Serious: No
  Sender: FDA-Public Use
  Company Number: US-AMGEN-USASP2010006131

PATIENT
  Age: 54 Year
  Sex: Female

DRUGS (1)
  1. ENBREL [Suspect]
     Indication: RHEUMATOID ARTHRITIS
     Dosage: 50 MG, QWK
     Dates: start: 20100831

REACTIONS (10)
  - ASTHENIA [None]
  - MUSCLE SPASMS [None]
  - INJECTION SITE ERYTHEMA [None]
  - HEADACHE [None]
  - DRY SKIN [None]
  - PRURITUS [None]
  - FATIGUE [None]
  - INJECTION SITE SWELLING [None]
  - DIZZINESS [None]
  - PAIN [None]
